FAERS Safety Report 6591043-0 (Version None)
Quarter: 2010Q1

REPORT INFORMATION
  Report Type: 
  Country: None (occurrence: None)
  Receive Date: 20100219
  Receipt Date: 20100208
  Transmission Date: 20100710
  Serious: Yes (Hospitalization)
  Sender: FDA-Public Use
  Company Number: US-CELGENEUS-163-20785-10020640

PATIENT
  Sex: Female

DRUGS (4)
  1. THALOMID [Suspect]
     Indication: MULTIPLE MYELOMA
     Route: 048
     Dates: start: 20090701
  2. THALOMID [Suspect]
     Dosage: 50-100MG
     Route: 048
     Dates: start: 20080901, end: 20090401
  3. THALOMID [Suspect]
     Route: 048
     Dates: start: 20080601, end: 20080601
  4. THALOMID [Suspect]
     Dosage: 50-100MG
     Route: 048
     Dates: start: 20070501, end: 20080301

REACTIONS (1)
  - SPINAL COMPRESSION FRACTURE [None]
